FAERS Safety Report 11690821 (Version 2)
Quarter: 2015Q4

REPORT INFORMATION
  Report Type: Report from Study
  Country: IL (occurrence: IL)
  Receive Date: 20151102
  Receipt Date: 20151104
  Transmission Date: 20160304
  Serious: Yes (Death, Hospitalization)
  Sender: FDA-Public Use
  Company Number: IL-ASTRAZENECA-2014SE00318

PATIENT
  Age: 21231 Day
  Sex: Female

DRUGS (7)
  1. PRAMIN [Concomitant]
     Indication: NAUSEA
     Route: 048
     Dates: start: 20090410
  2. COUMADIN [Concomitant]
     Active Substance: WARFARIN SODIUM
     Indication: VENA CAVA THROMBOSIS
     Route: 048
     Dates: start: 20091104
  3. COUMADIN [Concomitant]
     Active Substance: WARFARIN SODIUM
     Indication: VENA CAVA THROMBOSIS
     Route: 048
     Dates: start: 20100120, end: 20100210
  4. AZD2281 [Suspect]
     Active Substance: OLAPARIB
     Indication: OVARIAN CANCER
     Route: 048
     Dates: start: 20090406, end: 20131229
  5. COUMADIN [Concomitant]
     Active Substance: WARFARIN SODIUM
     Indication: VENA CAVA THROMBOSIS
     Route: 048
     Dates: start: 20100217
  6. FOLEX [Concomitant]
     Indication: ANAEMIA
     Route: 048
     Dates: start: 20090507
  7. VESICARE [Concomitant]
     Active Substance: SOLIFENACIN SUCCINATE
     Indication: URINARY INCONTINENCE
     Route: 048
     Dates: start: 20100411

REACTIONS (1)
  - Acute myeloid leukaemia [Fatal]

NARRATIVE: CASE EVENT DATE: 20140120
